FAERS Safety Report 4322101-9 (Version None)
Quarter: 2004Q1

REPORT INFORMATION
  Report Type: 
  Country: None (occurrence: None)
  Receive Date: 20040323
  Receipt Date: 20040310
  Transmission Date: 20041129
  Serious: Yes (Death)
  Sender: FDA-Public Use
  Company Number: NZ-GLAXOSMITHKLINE-B0326200A

PATIENT
  Age: 53 Year
  Sex: Male

DRUGS (5)
  1. DILATREND [Suspect]
     Dosage: 25MG PER DAY
     Route: 048
     Dates: start: 20020920
  2. INHIBACE [Suspect]
     Dosage: 2.5MG PER DAY
     Route: 048
     Dates: start: 20010615
  3. CARTIA [Suspect]
     Dosage: 100MG PER DAY
     Route: 048
     Dates: start: 20020615
  4. PROZAC [Suspect]
     Dosage: 200MG PER DAY
     Route: 048
     Dates: start: 20020615
  5. ATORVASTATIN [Suspect]
     Dosage: 10MG PER DAY
     Route: 048
     Dates: start: 20020615

REACTIONS (2)
  - CONDITION AGGRAVATED [None]
  - CONGESTIVE CARDIOMYOPATHY [None]
